FAERS Safety Report 16774799 (Version 1)
Quarter: 2019Q3

REPORT INFORMATION
  Report Type: Report from Study
  Country: CA (occurrence: CA)
  Receive Date: 20190905
  Receipt Date: 20190905
  Transmission Date: 20191005
  Serious: Yes (Hospitalization, Other)
  Sender: FDA-Public Use
  Company Number: CA-PFIZER INC-2019377028

PATIENT
  Age: 69 Year
  Sex: Female

DRUGS (13)
  1. RISPERIDONE. [Concomitant]
     Active Substance: RISPERIDONE
     Dosage: UNK
     Route: 065
  2. ASA [Concomitant]
     Active Substance: ASPIRIN
     Dosage: UNK
     Route: 065
  3. CITALOPRAM [Concomitant]
     Active Substance: CITALOPRAM HYDROBROMIDE
     Dosage: UNK
     Route: 065
  4. GABAPENTIN. [Concomitant]
     Active Substance: GABAPENTIN
     Dosage: UNK
     Route: 065
  5. PAMIDRONATE DISODIUM. [Suspect]
     Active Substance: PAMIDRONATE DISODIUM
     Indication: PLASMA CELL MYELOMA
     Dosage: UNK
     Route: 042
  6. ZOMETA [Suspect]
     Active Substance: ZOLEDRONIC ACID
     Indication: PLASMA CELL MYELOMA
     Dosage: 3 MG, UNK
     Route: 042
  7. CYCLOPHOSPHAMIDE. [Concomitant]
     Active Substance: CYCLOPHOSPHAMIDE
     Dosage: UNK
     Route: 065
  8. LEVOTHYROXINE. [Concomitant]
     Active Substance: LEVOTHYROXINE
     Dosage: UNK
     Route: 065
  9. ROSUVASTATIN. [Concomitant]
     Active Substance: ROSUVASTATIN
     Dosage: UNK
     Route: 065
  10. DEXAMETHASONE. [Concomitant]
     Active Substance: DEXAMETHASONE
     Dosage: UNK
     Route: 065
  11. METOPROLOL. [Suspect]
     Active Substance: METOPROLOL
     Dosage: UNK
     Route: 065
  12. ACYCLOVIR [ACICLOVIR SODIUM] [Concomitant]
     Active Substance: ACYCLOVIR
     Dosage: UNK
     Route: 065
  13. VELCADE [Concomitant]
     Active Substance: BORTEZOMIB
     Dosage: UNK
     Route: 042

REACTIONS (4)
  - Bone disorder [Unknown]
  - Humerus fracture [Unknown]
  - Neoplasm recurrence [Unknown]
  - Fear [Unknown]
